FAERS Safety Report 5392310-9 (Version None)
Quarter: 2007Q3

REPORT INFORMATION
  Report Type: 
  Country: None (occurrence: None)
  Receive Date: 20070720
  Receipt Date: 20070711
  Transmission Date: 20080115
  Serious: Yes (Life-Threatening)
  Sender: FDA-Public Use
  Company Number: IT-ROCHE-506533

PATIENT
  Age: 9 Year
  Sex: Male

DRUGS (4)
  1. MYCOPHENOLATE MOFETIL [Suspect]
     Route: 048
     Dates: start: 20070617
  2. MYCOPHENOLATE MOFETIL [Suspect]
     Route: 048
  3. FK 506 [Suspect]
     Route: 048
     Dates: start: 20070617
  4. CORTICOSTEROIDS [Concomitant]

REACTIONS (2)
  - PNEUMONIA [None]
  - RHABDOMYOLYSIS [None]
